FAERS Safety Report 20093319 (Version 2)
Quarter: 2021Q4

REPORT INFORMATION
  Report Type: Spontaneous
  Country: BR (occurrence: BR)
  Receive Date: 20211120
  Receipt Date: 20211125
  Transmission Date: 20220304
  Serious: Yes (Hospitalization, Other)
  Sender: FDA-Public Use
  Company Number: BR-NOVARTISPH-NVSC2021BR264731

PATIENT
  Sex: Male

DRUGS (1)
  1. ENTRESTO [Suspect]
     Active Substance: SACUBITRIL\VALSARTAN
     Indication: Myocardial infarction
     Dosage: UNK
     Route: 065
     Dates: start: 2019

REACTIONS (4)
  - Dyspnoea [Not Recovered/Not Resolved]
  - Malaise [Unknown]
  - Oxygen saturation decreased [Not Recovered/Not Resolved]
  - Product use in unapproved indication [Unknown]
